FAERS Safety Report 5707995-4 (Version None)
Quarter: 2008Q2

REPORT INFORMATION
  Report Type: 
  Country: None (occurrence: None)
  Receive Date: 20080417
  Receipt Date: 20080411
  Transmission Date: 20081010
  Serious: Yes (Other)
  Sender: FDA-Public Use
  Company Number: US-BAYER-200811463BCC

PATIENT
  Age: 33 Year
  Sex: Male
  Weight: 82 kg

DRUGS (1)
  1. ASPIRIN [Suspect]
     Indication: HEADACHE
     Dosage: UNIT DOSE: 500 MG
     Route: 048
     Dates: start: 20080411

REACTIONS (2)
  - BLINDNESS [None]
  - DIZZINESS [None]
